FAERS Safety Report 17767844 (Version 14)
Quarter: 2024Q3

REPORT INFORMATION
  Report Type: Report from Study
  Country: AU (occurrence: AU)
  Receive Date: 20200511
  Receipt Date: 20240703
  Transmission Date: 20241017
  Serious: Yes (Hospitalization, Other)
  Sender: TAKEDA
  Company Number: AU-SHIRE-AU201912549

PATIENT
  Age: 11 Year
  Sex: Male
  Weight: 33 kg

DRUGS (26)
  1. IDURSULFASE [Suspect]
     Active Substance: IDURSULFASE
     Indication: Mucopolysaccharidosis II
     Dosage: 18 MILLIGRAM, 1/WEEK
     Route: 042
     Dates: start: 201401
  2. IDURSULFASE [Suspect]
     Active Substance: IDURSULFASE
     Dosage: UNK UNK, 1/WEEK
     Route: 041
  3. IDURSULFASE [Suspect]
     Active Substance: IDURSULFASE
     Dosage: 18 MILLIGRAM, 1/WEEK
     Route: 042
  4. IDURSULFASE [Suspect]
     Active Substance: IDURSULFASE
     Dosage: 18 MILLIGRAM, 1/WEEK
     Route: 050
  5. IDURSULFASE [Suspect]
     Active Substance: IDURSULFASE
     Dosage: 0.57 MILLIGRAM/KILOGRAM, 1/WEEK
     Route: 041
     Dates: end: 20190912
  6. IDURSULFASE [Suspect]
     Active Substance: IDURSULFASE
     Dosage: 0.57 MILLIGRAM/KILOGRAM, 1/WEEK
     Route: 041
     Dates: end: 20190912
  7. IDURSULFASE [Suspect]
     Active Substance: IDURSULFASE
     Dosage: 0.57 MILLIGRAM/KILOGRAM, 1/WEEK
     Route: 041
     Dates: end: 20190912
  8. IDURSULFASE [Suspect]
     Active Substance: IDURSULFASE
     Dosage: 18 MILLIGRAM, 1/WEEK
     Route: 042
  9. IDURSULFASE [Suspect]
     Active Substance: IDURSULFASE
     Dosage: 18 MILLIGRAM, 1/WEEK
     Route: 041
  10. IDURSULFASE [Suspect]
     Active Substance: IDURSULFASE
     Dosage: 0.57 MILLIGRAM/KILOGRAM, 1/WEEK
     Route: 041
     Dates: start: 20140108
  11. IDURSULFASE [Suspect]
     Active Substance: IDURSULFASE
     Dosage: 0.57 MILLIGRAM/KILOGRAM, 1/WEEK
     Route: 041
     Dates: start: 20171228
  12. IDURSULFASE [Suspect]
     Active Substance: IDURSULFASE
     Dosage: 0.57 MILLIGRAM/KILOGRAM, 1/WEEK
     Route: 041
     Dates: start: 20180919
  13. IDURSULFASE [Suspect]
     Active Substance: IDURSULFASE
     Dosage: 0.57 MILLIGRAM/KILOGRAM, 1/WEEK
     Route: 041
     Dates: start: 20190116
  14. IDURSULFASE [Suspect]
     Active Substance: IDURSULFASE
     Dosage: 18 MILLIGRAM, 1/WEEK
     Route: 050
     Dates: start: 20190403
  15. IDURSULFASE [Suspect]
     Active Substance: IDURSULFASE
     Dosage: UNK, 1/WEEK
     Route: 065
  16. IDURSULFASE [Suspect]
     Active Substance: IDURSULFASE
     Dosage: 18 MILLIGRAM, 1/WEEK
     Route: 050
     Dates: start: 20190501
  17. IDURSULFASE [Suspect]
     Active Substance: IDURSULFASE
     Dosage: 18 MILLIGRAM, 1/WEEK
     Route: 050
     Dates: start: 20190814
  18. IDURSULFASE [Suspect]
     Active Substance: IDURSULFASE
     Dosage: UNK UNK, 1/WEEK
     Route: 041
     Dates: start: 20190912
  19. IDURSULFASE [Suspect]
     Active Substance: IDURSULFASE
     Dosage: 18 MILLIGRAM, 1/WEEK
     Route: 041
  20. IDURSULFASE [Suspect]
     Active Substance: IDURSULFASE
     Dosage: 0.57 MILLIGRAM/KILOGRAM, 1/WEEK
     Route: 041
  21. IDURSULFASE [Suspect]
     Active Substance: IDURSULFASE
     Dosage: 18 MILLIGRAM, 1/WEEK
     Route: 041
  22. IDURSULFASE [Suspect]
     Active Substance: IDURSULFASE
     Dosage: 18 MILLIGRAM, 1/WEEK
     Route: 041
  23. IDURSULFASE [Suspect]
     Active Substance: IDURSULFASE
     Dosage: 18 MILLIGRAM, 1/WEEK
     Route: 041
     Dates: start: 20200401
  24. IDURSULFASE [Suspect]
     Active Substance: IDURSULFASE
     Dosage: 18 MILLIGRAM, 1/WEEK
     Route: 042
     Dates: start: 20210428, end: 20210428
  25. IDURSULFASE [Suspect]
     Active Substance: IDURSULFASE
     Dosage: 18 MILLIGRAM, 1/WEEK
     Route: 042
     Dates: start: 20210804
  26. IDURSULFASE [Suspect]
     Active Substance: IDURSULFASE
     Dosage: 18 MILLIGRAM, 1/WEEK
     Route: 041
     Dates: start: 20220330

REACTIONS (22)
  - Dental operation [Recovered/Resolved]
  - Pyrexia [Unknown]
  - Device related infection [Recovered/Resolved]
  - Bradycardia [Recovered/Resolved]
  - Lower respiratory tract infection [Recovering/Resolving]
  - Dysstasia [Recovered/Resolved]
  - Nasopharyngitis [Not Recovered/Not Resolved]
  - Hypotension [Unknown]
  - Agitation [Not Recovered/Not Resolved]
  - Tachycardia [Recovering/Resolving]
  - Aggression [Not Recovered/Not Resolved]
  - Emotional distress [Not Recovered/Not Resolved]
  - Influenza [Not Recovered/Not Resolved]
  - Malaise [Not Recovered/Not Resolved]
  - Cough [Not Recovered/Not Resolved]
  - Rhinorrhoea [Not Recovered/Not Resolved]
  - Respiratory disorder [Not Recovered/Not Resolved]
  - Upper respiratory tract infection [Unknown]
  - Diastolic hypertension [Unknown]
  - Device deposit issue [Recovered/Resolved]
  - Device issue [Not Recovered/Not Resolved]
  - Incorrect route of product administration [Unknown]

NARRATIVE: CASE EVENT DATE: 20190410
